FAERS Safety Report 9361191 (Version 2)
Quarter: 2013Q3

REPORT INFORMATION
  Report Type: Spontaneous
  Country: US (occurrence: None)
  Receive Date: 20130618
  Receipt Date: 20130701
  Transmission Date: 20140515
  Serious: Yes (Other)
  Sender: FDA-Public Use
  Company Number: 2013P1008127

PATIENT
  Age: 18 Year
  Sex: Male
  Weight: 79.38 kg

DRUGS (1)
  1. MYORISAN [Suspect]
     Indication: ACNE
     Dates: start: 20130308, end: 20130607

REACTIONS (1)
  - Jaw disorder [None]
